FAERS Safety Report 23944604 (Version 7)
Quarter: 2025Q2

REPORT INFORMATION
  Report Type: Report from Study
  Country: CA (occurrence: CA)
  Receive Date: 20240606
  Receipt Date: 20250421
  Transmission Date: 20250717
  Serious: Yes (Other)
  Sender: TAKEDA
  Company Number: CA-TAKEDA-2024TUS013512

PATIENT
  Age: 70 Year
  Sex: Male

DRUGS (17)
  1. VEDOLIZUMAB [Suspect]
     Active Substance: VEDOLIZUMAB
     Indication: Colitis ulcerative
  2. VEDOLIZUMAB [Suspect]
     Active Substance: VEDOLIZUMAB
  3. VEDOLIZUMAB [Suspect]
     Active Substance: VEDOLIZUMAB
     Dosage: 300 MILLIGRAM, Q4WEEKS
     Dates: start: 20240410
  4. VEDOLIZUMAB [Suspect]
     Active Substance: VEDOLIZUMAB
     Dosage: 300 MILLIGRAM, Q4WEEKS
  5. VEDOLIZUMAB [Suspect]
     Active Substance: VEDOLIZUMAB
     Dosage: 300 MILLIGRAM, Q4WEEKS
  6. VEDOLIZUMAB [Suspect]
     Active Substance: VEDOLIZUMAB
     Dosage: 300 MILLIGRAM, Q4WEEKS
  7. VEDOLIZUMAB [Suspect]
     Active Substance: VEDOLIZUMAB
     Dosage: 300 MILLIGRAM, Q4WEEKS
  8. VEDOLIZUMAB [Suspect]
     Active Substance: VEDOLIZUMAB
     Dosage: 300 MILLIGRAM, Q4WEEKS
     Dates: end: 20240410
  9. PANTOPRAZOLE SODIUM [Suspect]
     Active Substance: PANTOPRAZOLE SODIUM
     Indication: Product used for unknown indication
  10. SITAGLIPTIN [Concomitant]
     Active Substance: SITAGLIPTIN
  11. IRBESARTAN [Concomitant]
     Active Substance: IRBESARTAN
  12. ROSUVASTATIN [Concomitant]
     Active Substance: ROSUVASTATIN
  13. SCOPOLAMINE [Concomitant]
     Active Substance: SCOPOLAMINE
  14. METFORMIN [Concomitant]
     Active Substance: METFORMIN HYDROCHLORIDE
  15. BUPROPION [Concomitant]
     Active Substance: BUPROPION
  16. PREDNISONE [Concomitant]
     Active Substance: PREDNISONE
  17. TALTZ [Concomitant]
     Active Substance: IXEKIZUMAB

REACTIONS (11)
  - Abdominal pain lower [Unknown]
  - Gastrointestinal sounds abnormal [Unknown]
  - Defaecation urgency [Unknown]
  - Faeces discoloured [Unknown]
  - Frequent bowel movements [Recovering/Resolving]
  - Drug ineffective [Unknown]
  - Off label use [Unknown]
  - Abdominal pain [Unknown]
  - Decreased appetite [Recovered/Resolved with Sequelae]
  - Abdominal distension [Unknown]
  - Nausea [Recovered/Resolved with Sequelae]

NARRATIVE: CASE EVENT DATE: 20240410
